FAERS Safety Report 6298094-4 (Version None)
Quarter: 2009Q3

REPORT INFORMATION
  Report Type: 
  Country: None (occurrence: None)
  Receive Date: 20090804
  Receipt Date: 20090804
  Transmission Date: 20100115
  Serious: Yes (Hospitalization)
  Sender: FDA-Public Use
  Company Number: None

PATIENT
  Age: 55 Year
  Sex: Female

DRUGS (1)
  1. NUVIGIL [Suspect]
     Dosage: 150 MG, ONCE DAILY, PO
     Route: 048
     Dates: start: 20090728, end: 20090801

REACTIONS (2)
  - ANGIOEDEMA [None]
  - TONGUE OEDEMA [None]
